FAERS Safety Report 5979055-9 (Version None)
Quarter: 2008Q4

REPORT INFORMATION
  Report Type: 
  Country: None (occurrence: None)
  Receive Date: 20081204
  Receipt Date: 20080520
  Transmission Date: 20090506
  Serious: No
  Sender: FDA-Public Use
  Company Number: US-ABBOTT-08P-163-0455688-00

PATIENT
  Age: 60 Year
  Sex: Male

DRUGS (2)
  1. TRICOR [Suspect]
     Indication: BLOOD CHOLESTEROL INCREASED
  2. ATORVASTATIN CALCIUM [Interacting]
     Indication: BLOOD CHOLESTEROL INCREASED
     Dosage: NOT REPORTED

REACTIONS (10)
  - ABNORMAL DREAMS [None]
  - ARTHRALGIA [None]
  - CONSTIPATION [None]
  - DISABILITY [None]
  - DIZZINESS [None]
  - DRUG INTERACTION [None]
  - MUSCLE SPASMS [None]
  - MUSCULAR WEAKNESS [None]
  - SLEEP DISORDER [None]
  - TERMINAL INSOMNIA [None]
